FAERS Safety Report 6864133-2 (Version None)
Quarter: 2010Q3

REPORT INFORMATION
  Report Type: 
  Country: None (occurrence: None)
  Receive Date: 20100721
  Receipt Date: 20080317
  Transmission Date: 20110219
  Serious: No
  Sender: FDA-Public Use
  Company Number: US-PFIZER INC-2008025288

PATIENT
  Sex: Male
  Weight: 84.09 kg

DRUGS (4)
  1. CHANTIX [Suspect]
     Indication: SMOKING CESSATION THERAPY
     Route: 048
     Dates: start: 20080308, end: 20080310
  2. SYNTHROID [Concomitant]
  3. ZANTAC [Concomitant]
  4. MOTRIN [Concomitant]

REACTIONS (8)
  - ABNORMAL DREAMS [None]
  - BREATH ODOUR [None]
  - DRY EYE [None]
  - HEADACHE [None]
  - INSOMNIA [None]
  - IRRITABILITY [None]
  - RESTLESS LEGS SYNDROME [None]
  - VERTIGO [None]
